FAERS Safety Report 13677554 (Version 1)
Quarter: 2017Q2

REPORT INFORMATION
  Report Type: Spontaneous
  Country: BR (occurrence: BR)
  Receive Date: 20170622
  Receipt Date: 20170622
  Transmission Date: 20170830
  Serious: Yes (Life-Threatening, Hospitalization)
  Sender: FDA-Public Use
  Company Number: BR-TORRENT-00003142

PATIENT
  Age: 54 Year
  Sex: Male
  Weight: 117 kg

DRUGS (5)
  1. BUP [Concomitant]
     Active Substance: BUPROPION HYDROCHLORIDE
  2. HYDROCHLOROTHIAZIDE. [Concomitant]
     Active Substance: HYDROCHLOROTHIAZIDE
  3. RESPIDON [Suspect]
     Active Substance: RISPERIDONE
  4. OLCADIL [Concomitant]
     Active Substance: CLOXAZOLAM
  5. LOSARTAN. [Concomitant]
     Active Substance: LOSARTAN

REACTIONS (23)
  - Sexual dysfunction [Not Recovered/Not Resolved]
  - Pulmonary oedema [Recovered/Resolved]
  - Confusional state [Not Recovered/Not Resolved]
  - Fatigue [Not Recovered/Not Resolved]
  - Ejaculation failure [Not Recovered/Not Resolved]
  - Cerebrovascular accident [Unknown]
  - Headache [Not Recovered/Not Resolved]
  - Diarrhoea [Recovered/Resolved]
  - Muscle rigidity [Not Recovered/Not Resolved]
  - Somnolence [Not Recovered/Not Resolved]
  - Hyporeflexia [Not Recovered/Not Resolved]
  - Hypertension [Recovered/Resolved]
  - Disturbance in attention [Not Recovered/Not Resolved]
  - Muscle contractions involuntary [Not Recovered/Not Resolved]
  - Thirst [Not Recovered/Not Resolved]
  - Myocardial infarction [Recovered/Resolved]
  - Nervousness [Recovered/Resolved]
  - Dizziness [Not Recovered/Not Resolved]
  - Micturition urgency [Not Recovered/Not Resolved]
  - Palpitations [Not Recovered/Not Resolved]
  - Vision blurred [Not Recovered/Not Resolved]
  - Depressed level of consciousness [Not Recovered/Not Resolved]
  - Weight increased [Not Recovered/Not Resolved]

NARRATIVE: CASE EVENT DATE: 2002
